FAERS Safety Report 15229199 (Version 3)
Quarter: 2019Q3

REPORT INFORMATION
  Report Type: Report from Study
  Country: US (occurrence: US)
  Receive Date: 20180801
  Receipt Date: 20190701
  Transmission Date: 20191004
  Serious: No
  Sender: FDA-Public Use
  Company Number: PHEH2018US031817

PATIENT
  Sex: Male

DRUGS (2)
  1. ENTRESTO [Suspect]
     Active Substance: SACUBITRIL\VALSARTAN
     Indication: CARDIAC FAILURE
     Dosage: 1 DF (24/26 MG), BID
     Route: 048
  2. ENTRESTO [Suspect]
     Active Substance: SACUBITRIL\VALSARTAN
     Indication: CARDIAC FAILURE CONGESTIVE
     Dosage: 1 DF (49/51 MG), BID
     Route: 065

REACTIONS (11)
  - Ejection fraction abnormal [Unknown]
  - Glossodynia [Unknown]
  - Hypotension [Unknown]
  - Swollen tongue [Unknown]
  - Fluid retention [Recovering/Resolving]
  - Sluggishness [Recovering/Resolving]
  - Malaise [Unknown]
  - Weight increased [Recovering/Resolving]
  - Blood pressure increased [Recovering/Resolving]
  - Withdrawal syndrome [Recovering/Resolving]
  - Wrong technique in product usage process [Unknown]
